FAERS Safety Report 5337982-X (Version None)
Quarter: 2007Q2

REPORT INFORMATION
  Report Type: 
  Country: None (occurrence: None)
  Receive Date: 20070327
  Receipt Date: 20061213
  Transmission Date: 20071010
  Serious: Yes (Other)
  Sender: FDA-Public Use
  Company Number: 232871

PATIENT
  Age: 48 Year
  Sex: Male

DRUGS (3)
  1. AVASTIN [Suspect]
     Indication: COLORECTAL CANCER
     Dosage: 5 MG/KG, Q2W
     Dates: start: 20060201, end: 20060901
  2. OXALIPLATIN [Concomitant]
  3. FLUOROURACIL [Concomitant]

REACTIONS (2)
  - DEEP VEIN THROMBOSIS [None]
  - SPLENIC INFARCTION [None]
